FAERS Safety Report 5689446-1 (Version None)
Quarter: 2008Q1

REPORT INFORMATION
  Report Type: 
  Country: None (occurrence: None)
  Receive Date: 20080331
  Receipt Date: 20080319
  Transmission Date: 20080703
  Serious: Yes (Hospitalization, Other)
  Sender: FDA-Public Use
  Company Number: US-PFIZER INC-2008012060

PATIENT
  Sex: Male
  Weight: 102.1 kg

DRUGS (8)
  1. LYRICA [Suspect]
     Indication: NEUROPATHY PERIPHERAL
     Route: 048
     Dates: start: 20080105, end: 20080121
  2. ACETYLSALICYLIC ACID SRT [Concomitant]
     Route: 048
  3. LEVAQUIN [Concomitant]
     Route: 048
  4. PERCOCET [Concomitant]
  5. CYMBALTA [Concomitant]
     Route: 048
  6. ZOCOR [Concomitant]
     Route: 048
  7. LEVOXYL [Concomitant]
     Route: 048
  8. OMEPRAZOLE [Concomitant]
     Route: 048

REACTIONS (6)
  - DELIRIUM [None]
  - GAIT DISTURBANCE [None]
  - HYPERTENSION [None]
  - MIGRAINE WITH AURA [None]
  - NAUSEA [None]
  - SINUSITIS [None]
